FAERS Safety Report 7555661-5 (Version None)
Quarter: 2011Q2

REPORT INFORMATION
  Report Type: 
  Country: None (occurrence: None)
  Receive Date: 20110617
  Receipt Date: 20080320
  Transmission Date: 20111010
  Serious: Yes (Death, Other)
  Sender: FDA-Public Use
  Company Number: PHHY2008AT03517

PATIENT
  Sex: Female
  Weight: 50 kg

DRUGS (5)
  1. LASIX [Concomitant]
     Indication: PULMONARY OEDEMA
     Dosage: 40 MG, UNK
  2. METOGASTRON [Concomitant]
     Indication: NAUSEA
  3. ZOMETA [Suspect]
     Indication: METASTASES TO BONE
     Dosage: 4 MG, UNK
  4. FEMARA [Suspect]
     Dosage: UNK, UNK
     Dates: start: 20040428
  5. HALDOL [Concomitant]
     Indication: ANXIOLYTIC THERAPY

REACTIONS (5)
  - DYSPNOEA [None]
  - HYPOTENSION [None]
  - DEATH [None]
  - WEIGHT DECREASED [None]
  - GENERAL PHYSICAL HEALTH DETERIORATION [None]
